FAERS Safety Report 16701736 (Version 2)
Quarter: 2022Q1

REPORT INFORMATION
  Report Type: Spontaneous
  Country: US (occurrence: US)
  Receive Date: 20190814
  Receipt Date: 20220330
  Transmission Date: 20220423
  Serious: No
  Sender: FDA-Public Use
  Company Number: US-BRISTOL-MYERS SQUIBB COMPANY-BMS-2019-080263

PATIENT
  Age: 59 Year
  Sex: Female

DRUGS (1)
  1. ORENCIA [Suspect]
     Active Substance: ABATACEPT
     Indication: Arthritis
     Dosage: 125 MILLIGRAM, QWK
     Route: 058
     Dates: start: 20190228

REACTIONS (3)
  - Joint swelling [Unknown]
  - Device defective [Unknown]
  - Arthralgia [Unknown]

NARRATIVE: CASE EVENT DATE: 20190812
